FAERS Safety Report 21340300 (Version 1)
Quarter: 2022Q3

REPORT INFORMATION
  Report Type: Spontaneous
  Country: US (occurrence: None)
  Receive Date: 20220915
  Receipt Date: 20220915
  Transmission Date: 20221027
  Serious: No
  Sender: FDA-Public Use
  Company Number: None

PATIENT
  Sex: Female

DRUGS (1)
  1. IBRANCE [Suspect]
     Active Substance: PALBOCICLIB
     Indication: Breast cancer
     Dosage: FREQUENCY : AS DIRECTED;?TAKE 1 TABLET BY MOUTH DAILY FOR 2 DAYS ON , 1 DAY OFF, FOR 21 DAYS, THEN 7
     Route: 048
     Dates: start: 20211122

REACTIONS (3)
  - COVID-19 [None]
  - Disease progression [None]
  - Metastases to breast [None]
